FAERS Safety Report 8917147 (Version 1)
Quarter: 2012Q4

REPORT INFORMATION
  Report Type: 
  Country: US (occurrence: US)
  Receive Date: 20121120
  Receipt Date: 20121120
  Transmission Date: 20130627
  Serious: Yes (Other)
  Sender: FDA-Public Use
  Company Number: PHEH2012US000888

PATIENT
  Age: 10 None
  Sex: Female

DRUGS (10)
  1. AFINITOR [Suspect]
     Indication: TUBEROUS SCLEROSIS
     Dosage: 10 mg, daily
     Route: 048
     Dates: start: 20090501
  2. AFINITOR [Suspect]
     Dosage: 5 mg, UNK
     Route: 048
     Dates: start: 20111102
  3. AFINITOR [Suspect]
     Dosage: 7.5 mg, daily
     Route: 048
     Dates: start: 20120102
  4. AFINITOR [Suspect]
     Dosage: 10 mg, daily
     Dates: start: 20120511
  5. TOPAMAX [Concomitant]
  6. FELBAMATE [Concomitant]
     Dates: start: 20120525
  7. CLOBAZAM [Concomitant]
  8. RUFINAMIDE [Concomitant]
  9. BANZIL [Concomitant]
  10. ONFI [Concomitant]

REACTIONS (4)
  - Clonic convulsion [Not Recovered/Not Resolved]
  - Tonic convulsion [Not Recovered/Not Resolved]
  - Fatigue [Unknown]
  - Drug level below therapeutic [Unknown]
